FAERS Safety Report 24293891 (Version 1)
Quarter: 2024Q3

REPORT INFORMATION
  Report Type: Spontaneous
  Country: US (occurrence: None)
  Receive Date: 20240906
  Receipt Date: 20240906
  Transmission Date: 20241017
  Serious: No
  Sender: DOMPE FARMACEUTICI
  Company Number: US-FARMAPROD-202308-202403-0800

PATIENT
  Sex: Female

DRUGS (13)
  1. OXERVATE [Suspect]
     Active Substance: CENEGERMIN-BKBJ
     Indication: Product used for unknown indication
     Route: 047
     Dates: start: 20240229
  2. VITAMIN D-400 [Concomitant]
  3. VITAMIN B12 [Concomitant]
     Active Substance: CYANOCOBALAMIN
  4. ASPIRIN [Concomitant]
     Active Substance: ASPIRIN
  5. CELECOXIB [Concomitant]
     Active Substance: CELECOXIB
  6. IBUPROFEN [Concomitant]
     Active Substance: IBUPROFEN
  7. BROMOCRIPTINE MESYLATE [Concomitant]
     Active Substance: BROMOCRIPTINE MESYLATE
  8. ONDANSETRON [Concomitant]
     Active Substance: ONDANSETRON
     Dosage: ORALLY DISINTEGRATING TABLETS, RAPID
  9. TRAMADOL HCL [Concomitant]
     Active Substance: TRAMADOL HYDROCHLORIDE
  10. BROMOCRIPTINE MESYLATE [Concomitant]
     Active Substance: BROMOCRIPTINE MESYLATE
  11. NAPROXEN [Concomitant]
     Active Substance: NAPROXEN
  12. CABERGOLINE [Concomitant]
     Active Substance: CABERGOLINE
  13. CLINDAMYCIN HYDROCHLORIDE [Concomitant]
     Active Substance: CLINDAMYCIN HYDROCHLORIDE

REACTIONS (2)
  - Eye pain [Unknown]
  - Foreign body sensation in eyes [Unknown]
